FAERS Safety Report 18640707 (Version 1)
Quarter: 2020Q4

REPORT INFORMATION
  Report Type: Other
  Country: CA (occurrence: CA)
  Receive Date: 20201221
  Receipt Date: 20201221
  Transmission Date: 20210114
  Serious: Yes (Other)
  Sender: FDA-Public Use
  Company Number: CA-CELLTRION INC.-2020CA033808

PATIENT

DRUGS (23)
  1. RITUXIMAB (UNKNOWN) [Suspect]
     Active Substance: RITUXIMAB
     Indication: RHEUMATOID ARTHRITIS
     Dosage: 1000 MILLIGRAM
     Route: 042
  2. ACETAMINOPHEN. [Concomitant]
     Active Substance: ACETAMINOPHEN
     Indication: PREMEDICATION
     Dosage: 650 MILLIGRAM
     Route: 048
  3. HYDROMORPH CONTIN [Concomitant]
     Active Substance: HYDROMORPHONE
  4. SOLU-MEDROL [Concomitant]
     Active Substance: METHYLPREDNISOLONE SODIUM SUCCINATE
     Indication: PREMEDICATION
     Dosage: 100 MILLIGRAM
     Route: 042
  5. ASA [Concomitant]
     Active Substance: ASPIRIN
  6. SYNTHROID [Concomitant]
     Active Substance: LEVOTHYROXINE SODIUM
  7. DIPHENHYDRAMINE. [Concomitant]
     Active Substance: DIPHENHYDRAMINE
     Indication: PREMEDICATION
     Dosage: 50 MILLIGRAM
     Route: 048
  8. HYDROXYCHLOROQUINE [Concomitant]
     Active Substance: HYDROXYCHLOROQUINE
  9. NAPROSYN [Concomitant]
     Active Substance: NAPROXEN
  10. PREGABALIN. [Concomitant]
     Active Substance: PREGABALIN
  11. FUROSEMIDE. [Concomitant]
     Active Substance: FUROSEMIDE
  12. TYLENOL 8HR [Concomitant]
     Active Substance: ACETAMINOPHEN
     Indication: ARTHRALGIA
  13. FENTANYL. [Suspect]
     Active Substance: FENTANYL
     Indication: PRODUCT USED FOR UNKNOWN INDICATION
     Route: 065
  14. ORENCIA [Concomitant]
     Active Substance: ABATACEPT
     Route: 042
  15. RABEPRAZOLE [Concomitant]
     Active Substance: RABEPRAZOLE
  16. RITUXIMAB (UNKNOWN) [Suspect]
     Active Substance: RITUXIMAB
     Indication: NEOPLASM MALIGNANT
  17. AMLODIPINE [Concomitant]
     Active Substance: AMLODIPINE BESYLATE
  18. FOLIC ACID. [Concomitant]
     Active Substance: FOLIC ACID
  19. PREDNISONE. [Concomitant]
     Active Substance: PREDNISONE
  20. SULFASALAZINE. [Concomitant]
     Active Substance: SULFASALAZINE
  21. ESOMEPRAZOLE. [Concomitant]
     Active Substance: ESOMEPRAZOLE MAGNESIUM
  22. LEFLUNOMIDE. [Concomitant]
     Active Substance: LEFLUNOMIDE
  23. POLYSACCHARIDE-IRON COMPLEX [Concomitant]
     Active Substance: FERRIC POLYSACCHARIDE COMPLEX

REACTIONS (20)
  - Fall [Unknown]
  - Mass [Unknown]
  - Blood pressure systolic increased [Unknown]
  - Rheumatoid arthritis [Unknown]
  - Localised infection [Unknown]
  - Ligament sprain [Unknown]
  - Blood pressure fluctuation [Unknown]
  - Contusion [Unknown]
  - Injection site extravasation [Unknown]
  - Hypotension [Unknown]
  - Dizziness [Unknown]
  - Blood pressure systolic abnormal [Unknown]
  - Infusion site extravasation [Unknown]
  - Oxygen saturation decreased [Unknown]
  - Blood pressure increased [Unknown]
  - Heart rate increased [Unknown]
  - Intentional product use issue [Unknown]
  - Injection site mass [Unknown]
  - Tachycardia [Unknown]
  - Off label use [Unknown]
